FAERS Safety Report 19386472 (Version 2)
Quarter: 2021Q2

REPORT INFORMATION
  Report Type: Report from Study
  Country: US (occurrence: US)
  Receive Date: 20210608
  Receipt Date: 20210611
  Transmission Date: 20210717
  Serious: No
  Sender: FDA-Public Use
  Company Number: US-AMGEN-USASP2021085450

PATIENT
  Age: 65 Year
  Sex: Female

DRUGS (2)
  1. REPATHA [Suspect]
     Active Substance: EVOLOCUMAB
     Indication: HYPERCHOLESTEROLAEMIA
     Dosage: 140 MILLIGRAM, Q2WK
     Route: 058
     Dates: start: 202010
  2. REPATHA [Suspect]
     Active Substance: EVOLOCUMAB
     Indication: BLOOD CHOLESTEROL INCREASED

REACTIONS (13)
  - Skin disorder [Recovering/Resolving]
  - Skin burning sensation [Recovering/Resolving]
  - Productive cough [Recovering/Resolving]
  - Epistaxis [Recovering/Resolving]
  - Oral mucosal blistering [Unknown]
  - Skin discolouration [Recovering/Resolving]
  - Rhinorrhoea [Unknown]
  - Acne [Recovering/Resolving]
  - Dysphagia [Recovering/Resolving]
  - Adverse reaction [Unknown]
  - Photosensitivity reaction [Unknown]
  - Blood glucose increased [Unknown]
  - Dizziness [Unknown]

NARRATIVE: CASE EVENT DATE: 202010
